FAERS Safety Report 10479389 (Version 1)
Quarter: 2014Q3

REPORT INFORMATION
  Report Type: Spontaneous
  Country: US (occurrence: US)
  Receive Date: 20140926
  Receipt Date: 20140926
  Transmission Date: 20150326
  Serious: Yes (Hospitalization, Other)
  Sender: FDA-Public Use
  Company Number: US-ASTRAZENECA-2014SE72202

PATIENT
  Age: 40 Year
  Sex: Female
  Weight: 98.4 kg

DRUGS (6)
  1. MORPHINE (NON AZ DRUG) [Suspect]
     Active Substance: MORPHINE
     Route: 065
  2. PEPCID [Concomitant]
     Active Substance: FAMOTIDINE
     Indication: ULCER
     Dosage: TWO TIMES A DAY
  3. PRILOSEC [Suspect]
     Active Substance: OMEPRAZOLE MAGNESIUM
     Indication: ULCER
     Route: 048
     Dates: start: 1994, end: 1995
  4. REGLAN [Concomitant]
     Active Substance: METOCLOPRAMIDE HYDROCHLORIDE
     Indication: ULCER
     Dosage: TWO TIMES A DAY
  5. ZOFRAN [Concomitant]
     Active Substance: ONDANSETRON HYDROCHLORIDE
     Indication: ULCER
     Dosage: TWO TIMES A DAY
  6. NEXIUM [Suspect]
     Active Substance: ESOMEPRAZOLE MAGNESIUM
     Indication: GASTRIC ULCER
     Route: 048
     Dates: start: 1995

REACTIONS (7)
  - Gastric ulcer [Unknown]
  - Malaise [Unknown]
  - Gastric ulcer haemorrhage [Unknown]
  - Intentional product misuse [Unknown]
  - Dyspepsia [Unknown]
  - Drug hypersensitivity [Unknown]
  - Gastritis erosive [Unknown]

NARRATIVE: CASE EVENT DATE: 1995
